FAERS Safety Report 13640856 (Version 1)
Quarter: 2017Q2

REPORT INFORMATION
  Report Type: Spontaneous
  Country: BR (occurrence: BR)
  Receive Date: 20170612
  Receipt Date: 20170612
  Transmission Date: 20170830
  Serious: Yes (Other)
  Sender: FDA-Public Use
  Company Number: BR-TORRENT-00004004

PATIENT
  Sex: Male

DRUGS (2)
  1. LAMITOR [Suspect]
     Active Substance: LAMOTRIGINE
  2. LAMOTRIGINE. [Suspect]
     Active Substance: LAMOTRIGINE

REACTIONS (2)
  - Sensory loss [Not Recovered/Not Resolved]
  - Drug ineffective [Not Recovered/Not Resolved]
